FAERS Safety Report 5819089-8 (Version None)
Quarter: 2008Q3

REPORT INFORMATION
  Report Type: 
  Country: None (occurrence: None)
  Receive Date: 20080721
  Receipt Date: 20080721
  Transmission Date: 20090109
  Serious: No
  Sender: FDA-Public Use
  Company Number: None

PATIENT
  Age: 72 Year
  Sex: Female
  Weight: 63.5036 kg

DRUGS (1)
  1. EVISTA [Suspect]
     Indication: OSTEOPOROSIS
     Dosage: ONE TABLET DAILY
     Dates: start: 20071101, end: 20080325

REACTIONS (6)
  - DIARRHOEA [None]
  - DYSPNOEA [None]
  - LOSS OF CONSCIOUSNESS [None]
  - PALPITATIONS [None]
  - URTICARIA [None]
  - VOMITING [None]
